FAERS Safety Report 6171576-1 (Version None)
Quarter: 2009Q2

REPORT INFORMATION
  Report Type: 
  Country: None (occurrence: None)
  Receive Date: 20090429
  Receipt Date: 20090403
  Transmission Date: 20091009
  Serious: No
  Sender: FDA-Public Use
  Company Number: US-BAYER-200823790NA

PATIENT
  Age: 36 Year
  Sex: Female
  Weight: 89 kg

DRUGS (1)
  1. MAGNEVIST [Suspect]
     Indication: MIGRAINE
     Dosage: AS USED: 10 ML
     Route: 042
     Dates: start: 20080315, end: 20080315

REACTIONS (2)
  - PRURITUS GENERALISED [None]
  - RASH MACULAR [None]
